FAERS Safety Report 9188604 (Version 2)
Quarter: 2013Q1

REPORT INFORMATION
  Report Type: Report from Study
  Country: CA (occurrence: CA)
  Receive Date: 20130325
  Receipt Date: 20130327
  Transmission Date: 20140127
  Serious: Yes (Hospitalization, Other)
  Sender: FDA-Public Use
  Company Number: CA-ABBOTT-13P-028-1066032-00

PATIENT
  Age: 48 None
  Sex: Male

DRUGS (3)
  1. KALETRA TABLETS 200/50 [Suspect]
     Indication: ANTIRETROVIRAL THERAPY
     Route: 048
     Dates: start: 20050101
  2. KIVEXA [Concomitant]
     Indication: HIV INFECTION
     Dosage: 600/300MG
     Route: 048
  3. METFORMIN [Concomitant]
     Indication: DIABETES MELLITUS
     Route: 048

REACTIONS (3)
  - Coronary arterial stent insertion [Unknown]
  - Chest pain [Unknown]
  - Stress [Unknown]
